APPROVED DRUG PRODUCT: NITROFURANTOIN
Active Ingredient: NITROFURANTOIN, MACROCRYSTALLINE
Strength: 25MG
Dosage Form/Route: CAPSULE;ORAL
Application: A077025 | Product #002 | TE Code: AB
Applicant: AUROBINDO PHARMA USA INC
Approved: Oct 2, 2024 | RLD: No | RS: No | Type: RX